FAERS Safety Report 7917330-9 (Version None)
Quarter: 2011Q4

REPORT INFORMATION
  Report Type: 
  Country: None (occurrence: None)
  Receive Date: 20111116
  Receipt Date: 20111102
  Transmission Date: 20120403
  Serious: Yes (Other)
  Sender: FDA-Public Use
  Company Number: ES-ROCHE-1009085

PATIENT
  Age: 69 Year
  Sex: Female

DRUGS (3)
  1. HERCEPTIN [Suspect]
     Indication: BREAST CANCER METASTATIC
  2. AROMATASE INHIBITOR [Concomitant]
  3. HERCEPTIN [Suspect]

REACTIONS (1)
  - DRUG INTOLERANCE [None]
